FAERS Safety Report 13194260 (Version 1)
Quarter: 2017Q1

REPORT INFORMATION
  Report Type: Spontaneous
  Country: US (occurrence: US)
  Receive Date: 20170207
  Receipt Date: 20170207
  Transmission Date: 20170428
  Serious: No
  Sender: FDA-Public Use
  Company Number: US-JAZZ-2016-US-022965

PATIENT
  Sex: Female

DRUGS (20)
  1. ASPIRIN                            /00002701/ [Concomitant]
     Active Substance: ASPIRIN
  2. XYREM [Suspect]
     Active Substance: SODIUM OXYBATE
     Indication: PRODUCT USED FOR UNKNOWN INDICATION
     Dosage: 3 G, BID
     Route: 048
     Dates: start: 201309, end: 2013
  3. XYREM [Suspect]
     Active Substance: SODIUM OXYBATE
     Dosage: 4.5 G, BID
     Route: 048
     Dates: start: 201311
  4. FIORICET WITH CODEINE [Concomitant]
     Active Substance: ACETAMINOPHEN\BUTALBITAL\CAFFEINE\CODEINE PHOSPHATE
  5. BELSOMRA [Concomitant]
     Active Substance: SUVOREXANT
  6. ESTRACE [Concomitant]
     Active Substance: ESTRADIOL
  7. PROPRANOLOL                        /00030002/ [Concomitant]
     Active Substance: PROPRANOLOL HYDROCHLORIDE
  8. ROBAXIN-750 [Concomitant]
     Dosage: UNK
  9. ROBITUSSIN (GUAIFENESIN) [Concomitant]
     Active Substance: GUAIFENESIN
  10. LEVAQUIN [Concomitant]
     Active Substance: LEVOFLOXACIN
  11. OXYCODONE HCL ARISTO [Concomitant]
  12. ENJUVIA [Concomitant]
     Active Substance: ESTROGENS, CONJUGATED SYNTHETIC B
  13. METHADONE HCL [Concomitant]
     Active Substance: METHADONE HYDROCHLORIDE
  14. TOPAMAX [Concomitant]
     Active Substance: TOPIRAMATE
  15. EFFEXOR XR [Concomitant]
     Active Substance: VENLAFAXINE HYDROCHLORIDE
  16. CLONIDINE HCL [Concomitant]
     Active Substance: CLONIDINE HYDROCHLORIDE
  17. ZIOPTAN [Concomitant]
     Active Substance: TAFLUPROST
  18. POTASSIUM CHLORIDE. [Concomitant]
     Active Substance: POTASSIUM CHLORIDE
  19. HYDROCORTISONE. [Concomitant]
     Active Substance: HYDROCORTISONE
  20. CLONAZEPAM CEVALLOS [Concomitant]

REACTIONS (4)
  - Anxiety [Recovering/Resolving]
  - Hallucination [Recovering/Resolving]
  - Hypersomnia [Recovering/Resolving]
  - Drug ineffective [Unknown]
